FAERS Safety Report 9516591 (Version 1)
Quarter: 2013Q1

REPORT INFORMATION
  Report Type: Spontaneous
  Country: US (occurrence: None)
  Receive Date: 20130305
  Receipt Date: 20130305
  Transmission Date: 20140127
  Serious: Yes (Hospitalization)
  Sender: FDA-Public Use
  Company Number: 163-21880-12120359

PATIENT
  Age: 79 Year
  Sex: Female

DRUGS (10)
  1. REVLIMID [Suspect]
     Indication: PLASMA CELL MYELOMA
     Dosage: 10 MG, 21 IN 21 D, PO
     Dates: start: 20121026
  2. AMLODIPINE BESYLATE(AMLODIPINE BESILATE)(UNKNOWN) [Concomitant]
  3. BABY ASPIRIN(ACETYLSALICYLIC ACID)(UNKNOWN) [Concomitant]
  4. CARVEDILOL(CARVEDILOL)(UNKNOWN) [Concomitant]
  5. FISH OIL(FISH OIL)(UNKNOWN) [Concomitant]
  6. LANSOPRAZOLE(LANSOPRAZOLE)(UNKNOWN) [Concomitant]
  7. MULTI FOR HER(MULTIVITAMINS)(UNKNOWN) [Concomitant]
  8. NYAMYC(NYSTATIN)(UNKNOWN) [Concomitant]
  9. VITAMIN D-3(COLECALCIFEROL)(UNKNOWN) [Concomitant]
  10. VITAMIN E(TOCOPHEROL)(CAPSULES) [Concomitant]

REACTIONS (2)
  - Infection [None]
  - Pyrexia [None]
